FAERS Safety Report 20377170 (Version 2)
Quarter: 2022Q1

REPORT INFORMATION
  Report Type: Spontaneous
  Country: US (occurrence: US)
  Receive Date: 20220125
  Receipt Date: 20220207
  Transmission Date: 20220423
  Serious: Yes (Other)
  Sender: FDA-Public Use
  Company Number: US-CELLTRION INC.-2022US000592

PATIENT

DRUGS (7)
  1. TRUXIMA [Suspect]
     Active Substance: RITUXIMAB-ABBS
     Indication: Polyneuropathy
     Dosage: 700 MG EVERY ONE WEEKS FOR A TOTAL OF FOUR INFUSIONS; 22 JUL
     Route: 065
     Dates: start: 20210722
  2. TRUXIMA [Suspect]
     Active Substance: RITUXIMAB-ABBS
     Indication: Anti-neutrophil cytoplasmic antibody positive vasculitis
     Dosage: 700 MG EVERY ONE WEEKS FOR A TOTAL OF FOUR INFUSIONS; 29 JUL
     Route: 065
     Dates: start: 20210729
  3. TRUXIMA [Suspect]
     Active Substance: RITUXIMAB-ABBS
     Dosage: 700 MG EVERY ONE WEEKS FOR A TOTAL OF FOUR INFUSIONS; 05 AUG
     Route: 065
     Dates: start: 20210805
  4. TRUXIMA [Suspect]
     Active Substance: RITUXIMAB-ABBS
     Dosage: 700 MG EVERY ONE WEEKS FOR A TOTAL OF FOUR INFUSIONS; 12 AUG
     Route: 065
     Dates: start: 20210812
  5. TRUXIMA [Suspect]
     Active Substance: RITUXIMAB-ABBS
     Dosage: 500 MG, ONCE
     Route: 065
     Dates: start: 20220120
  6. LOSARTAN [Concomitant]
     Active Substance: LOSARTAN
     Dosage: 50 MG, DAILY
     Route: 048
  7. LEVOTHYROXINE [Concomitant]
     Active Substance: LEVOTHYROXINE
     Dosage: 100 MG, 6 TIMES WEEKLY
     Route: 048

REACTIONS (2)
  - Polyneuropathy [Unknown]
  - Off label use [Unknown]

NARRATIVE: CASE EVENT DATE: 20210722
